FAERS Safety Report 18683496 (Version 4)
Quarter: 2021Q2

REPORT INFORMATION
  Report Type: Report from Study
  Country: US (occurrence: US)
  Receive Date: 20201230
  Receipt Date: 20210409
  Transmission Date: 20210717
  Serious: Yes (Other)
  Sender: FDA-Public Use
  Company Number: US-GLAXOSMITHKLINE-US2020AMR245236

PATIENT
  Sex: Female

DRUGS (5)
  1. NIRAPARIB [Suspect]
     Active Substance: NIRAPARIB
     Indication: BONE CANCER
     Dosage: 300 MG, QD
  2. ZOMETA [Concomitant]
     Active Substance: ZOLEDRONIC ACID
     Indication: PRODUCT USED FOR UNKNOWN INDICATION
     Dosage: UNK
  3. NIRAPARIB [Suspect]
     Active Substance: NIRAPARIB
     Indication: RASH
     Dosage: 200 MG, QD
     Dates: start: 202103
  4. NIRAPARIB [Suspect]
     Active Substance: NIRAPARIB
     Indication: LUNG NEOPLASM MALIGNANT
     Dosage: 300 MG, QD
     Dates: start: 20201202
  5. NIRAPARIB [Suspect]
     Active Substance: NIRAPARIB
     Indication: SMALL CELL CARCINOMA
     Dosage: 300 MG, QD

REACTIONS (12)
  - Malignant neoplasm progression [Unknown]
  - Nausea [Not Recovered/Not Resolved]
  - Product use in unapproved indication [Unknown]
  - Drug monitoring procedure not performed [Unknown]
  - Drug ineffective [Unknown]
  - Bone cancer metastatic [Unknown]
  - Constipation [Not Recovered/Not Resolved]
  - Lung cancer metastatic [Unknown]
  - Insomnia [Not Recovered/Not Resolved]
  - Heart rate increased [Recovered/Resolved]
  - Off label use [Unknown]
  - Weight decreased [Unknown]
